FAERS Safety Report 16034092 (Version 1)
Quarter: 2019Q1

REPORT INFORMATION
  Report Type: Spontaneous
  Country: US (occurrence: US)
  Receive Date: 20190305
  Receipt Date: 20190305
  Transmission Date: 20190418
  Serious: No
  Sender: FDA-Public Use
  Company Number: US-IMPAX LABORATORIES, LLC-2018-IPXL-02704

PATIENT
  Sex: Male
  Weight: 73 kg

DRUGS (10)
  1. RYTARY [Suspect]
     Active Substance: CARBIDOPA\LEVODOPA
     Indication: PARKINSON^S DISEASE
     Dosage: 23.75/95 MG, ONE CAPSULE, THREE TIMES A DAY
     Route: 048
     Dates: start: 201707, end: 2017
  2. LORAZEPAM. [Concomitant]
     Active Substance: LORAZEPAM
     Indication: INSOMNIA
     Dosage: 0.5 MG, ONCE DAILY
     Route: 048
  3. XOLAIR [Concomitant]
     Active Substance: OMALIZUMAB
     Indication: ASTHMA
     Dosage: UNK, INHALATION
     Route: 055
  4. ROPINIROLE. [Concomitant]
     Active Substance: ROPINIROLE
     Indication: RESTLESS LEGS SYNDROME
     Dosage: 1 MG, ONCE DAILY
     Route: 048
  5. MONTELUKAST [Concomitant]
     Active Substance: MONTELUKAST SODIUM
     Indication: ASTHMA
     Dosage: 10 MG, ONCE DAILY
     Route: 048
  6. PROAIR HFA [Concomitant]
     Active Substance: ALBUTEROL SULFATE
     Indication: ASTHMA
     Dosage: UNK, AS NEEDED, INHALATION
     Route: 055
  7. BUPROPION. [Concomitant]
     Active Substance: BUPROPION
     Indication: DEPRESSION
     Dosage: 75 MG, ONCE DAILY
     Route: 048
  8. OMEPRAZOLE. [Concomitant]
     Active Substance: OMEPRAZOLE
     Indication: PRODUCT USED FOR UNKNOWN INDICATION
     Dosage: 20 MG, ONCE DAILY
     Route: 048
  9. PAROXETINE. [Concomitant]
     Active Substance: PAROXETINE
     Indication: DEPRESSION
     Dosage: 40 MG, ONCE DAILY
     Route: 048
  10. RYTARY [Suspect]
     Active Substance: CARBIDOPA\LEVODOPA
     Dosage: 36.25/145MG, ONE CAPSULE, TWICE DAILY
     Route: 048
     Dates: start: 2017

REACTIONS (4)
  - Dysphagia [Not Recovered/Not Resolved]
  - Choking [Unknown]
  - Cough [Unknown]
  - Product physical issue [Unknown]
